FAERS Safety Report 7341184 (Version 3)
Quarter: 2013Q1

REPORT INFORMATION
  Report Type: Spontaneous
  Country: FR (occurrence: FR)
  Receive Date: 20100401
  Receipt Date: 20130315
  Transmission Date: 20140127
  Serious: Yes (Other)
  Sender: FDA-Public Use
  Company Number: FR-PFIZER INC-2010014648

PATIENT
  Sex: Female

DRUGS (5)
  1. NEURONTIN [Suspect]
     Indication: NEURALGIA
     Dosage: 900 MG, 1X/DAY
     Dates: start: 2003
  2. NEURONTIN [Suspect]
     Dosage: 600 MG DAILY
  3. NEURONTIN [Suspect]
     Dosage: 600 MG DAILY
  4. LYRICA [Suspect]
     Indication: NEURALGIA
     Dosage: UNK
     Dates: start: 201204
  5. LYRICA [Suspect]
     Dosage: 75 MG IN THE MORNING, 50 MG AT NOON AND 50 MG IN THE EVENING
     Dates: start: 201209

REACTIONS (10)
  - Speech disorder [Not Recovered/Not Resolved]
  - Aphasia [Unknown]
  - Memory impairment [Unknown]
  - Gait disturbance [Unknown]
  - Communication disorder [Unknown]
  - Somnolence [Unknown]
  - Drug ineffective [Unknown]
  - Drug intolerance [Unknown]
  - Feeling abnormal [Unknown]
  - Weight increased [Unknown]
